FAERS Safety Report 16855229 (Version 1)
Quarter: 2019Q3

REPORT INFORMATION
  Report Type: Spontaneous
  Country: US (occurrence: US)
  Receive Date: 20190926
  Receipt Date: 20190926
  Transmission Date: 20191005
  Serious: No
  Sender: FDA-Public Use
  Company Number: US-BION-008109

PATIENT
  Sex: Female

DRUGS (1)
  1. IMODIUM A-D [Suspect]
     Active Substance: LOPERAMIDE HYDROCHLORIDE
     Indication: DIARRHOEA
     Dosage: DOSE: 2 SOFT GELS AT FIRST AND THEN ONE SOFT GEL TWO TIMES
     Route: 048
     Dates: start: 20190620, end: 20190621

REACTIONS (1)
  - Drug ineffective [Not Recovered/Not Resolved]
